FAERS Safety Report 10540058 (Version 1)
Quarter: 2014Q4

REPORT INFORMATION
  Report Type: Spontaneous
  Country: US (occurrence: US)
  Receive Date: 20141024
  Receipt Date: 20141024
  Transmission Date: 20150529
  Serious: No
  Sender: FDA-Public Use
  Company Number: US-AMGEN INC.-USASP2014081514

PATIENT
  Age: 28 Year
  Sex: Female

DRUGS (1)
  1. ENBREL [Suspect]
     Active Substance: ETANERCEPT
     Indication: JUVENILE IDIOPATHIC ARTHRITIS
     Dosage: 50 MG, QWK
     Route: 065

REACTIONS (6)
  - Injection site reaction [Unknown]
  - Injection site pruritus [Unknown]
  - Injection site swelling [Unknown]
  - Pruritus [Unknown]
  - Injection site erythema [Unknown]
  - Injection site urticaria [Unknown]

NARRATIVE: CASE EVENT DATE: 20141020
